FAERS Safety Report 7476331-8 (Version None)
Quarter: 2011Q2

REPORT INFORMATION
  Report Type: 
  Country: None (occurrence: None)
  Receive Date: 20110512
  Receipt Date: 20110509
  Transmission Date: 20111010
  Serious: Yes (Other)
  Sender: FDA-Public Use
  Company Number: A0596728A

PATIENT
  Age: 55 Year
  Sex: Male
  Weight: 100 kg

DRUGS (24)
  1. AVANDAMET [Suspect]
     Route: 048
     Dates: start: 20041115, end: 20060316
  2. METFORMIN HCL [Concomitant]
  3. ASPIRIN [Concomitant]
  4. PERCOCET [Concomitant]
  5. EXCEDRIN (MIGRAINE) [Concomitant]
  6. CELEBREX [Concomitant]
  7. ACTOS [Concomitant]
  8. FLEXERIL [Concomitant]
  9. CILOXAN [Concomitant]
     Route: 047
     Dates: start: 20030512
  10. CIALIS [Concomitant]
  11. VITAMINS [Concomitant]
  12. INSULIN [Concomitant]
  13. NAPROXEN (ALEVE) [Concomitant]
  14. GINKGO BILOBA [Concomitant]
  15. AVANDIA [Suspect]
     Dosage: 4MG TWICE PER DAY
     Route: 048
     Dates: start: 20041115, end: 20060316
  16. HYDROCHLOROTHIAZIDE [Concomitant]
     Dates: start: 20041115
  17. COUMADIN [Concomitant]
  18. ACULAR [Concomitant]
  19. ZOCOR [Concomitant]
  20. ECONOPRED [Concomitant]
     Route: 047
     Dates: start: 20030512
  21. ALTACE [Concomitant]
  22. HYDROCHLOROTHIAZIDE [Concomitant]
  23. ADVIL LIQUI-GELS [Concomitant]
  24. VITAMIN C [Concomitant]

REACTIONS (9)
  - MACULAR OEDEMA [None]
  - VISION BLURRED [None]
  - BORDERLINE GLAUCOMA [None]
  - DIABETIC RETINOPATHY [None]
  - RETINOPATHY [None]
  - CATARACT [None]
  - BLINDNESS [None]
  - VISUAL IMPAIRMENT [None]
  - ABNORMAL SENSATION IN EYE [None]
